FAERS Safety Report 22788622 (Version 3)
Quarter: 2023Q4

REPORT INFORMATION
  Report Type: Spontaneous
  Country: IL (occurrence: IL)
  Receive Date: 20230804
  Receipt Date: 20231011
  Transmission Date: 20240110
  Serious: Yes (Hospitalization, Other)
  Sender: FDA-Public Use
  Company Number: IL-BRISTOL-MYERS SQUIBB COMPANY-2023-109229

PATIENT
  Age: 65 Year
  Sex: Female

DRUGS (6)
  1. ELIQUIS [Suspect]
     Active Substance: APIXABAN
     Indication: Product used for unknown indication
  2. ENOXAPARIN SODIUM [Concomitant]
     Active Substance: ENOXAPARIN SODIUM
     Indication: Product used for unknown indication
  3. MAGNOX [Concomitant]
     Indication: Product used for unknown indication
  4. NALOXONE HYDROCHLORIDE\OXYCODONE HYDROCHLORIDE [Concomitant]
     Active Substance: NALOXONE HYDROCHLORIDE\OXYCODONE HYDROCHLORIDE
     Indication: Product used for unknown indication
     Dosage: 20
  5. ZAPPA [Concomitant]
     Indication: Product used for unknown indication
     Dosage: 5
  6. CLONEX [CLOZAPINE] [Concomitant]
     Indication: Product used for unknown indication

REACTIONS (3)
  - Haematemesis [Unknown]
  - Melaena [Unknown]
  - Haemoglobin abnormal [Unknown]
